FAERS Safety Report 15534183 (Version 1)
Quarter: 2018Q4

REPORT INFORMATION
  Report Type: Report from Study
  Country: US (occurrence: US)
  Receive Date: 20181019
  Receipt Date: 20181019
  Transmission Date: 20190205
  Serious: Yes (Other)
  Sender: FDA-Public Use
  Company Number: US-PFIZER INC-2018423842

PATIENT

DRUGS (4)
  1. EPINEPHRINE/LIDOCAINE HYDROCHLORIDE [Suspect]
     Active Substance: EPINEPHRINE\LIDOCAINE HYDROCHLORIDE
     Indication: LOCAL ANAESTHESIA
     Dosage: 6 ML, SINGLE (6 ML OF A 2%-3.3% LIDOCAINE SOLUTION WITH)
     Route: 047
  2. HYALURONIDASE [Suspect]
     Active Substance: HYALURONIDASE
     Indication: LOCAL ANAESTHESIA
     Dosage: 7.5 UNITS/ML, SINGLE (INFEROLATERAL TO THE EYE AS A SINGLE INJECTION)
     Route: 047
  3. FENTANYL. [Concomitant]
     Active Substance: FENTANYL
     Indication: SEDATION
     Dosage: UNK (50-100 UG)
     Route: 042
  4. MIDAZOLAM [Concomitant]
     Active Substance: MIDAZOLAM HYDROCHLORIDE
     Indication: SEDATION
     Dosage: UNK (1-2 MG)
     Route: 042

REACTIONS (1)
  - Blindness [Unknown]
